FAERS Safety Report 23547675 (Version 1)
Quarter: 2024Q1

REPORT INFORMATION
  Report Type: Spontaneous
  Country: JP (occurrence: JP)
  Receive Date: 20240221
  Receipt Date: 20240221
  Transmission Date: 20240410
  Serious: Yes (Other)
  Sender: FDA-Public Use
  Company Number: JP-SUN PHARMACEUTICAL INDUSTRIES LTD-2024RR-432194

PATIENT
  Age: 64 Year
  Sex: Female

DRUGS (6)
  1. CARBOPLATIN [Suspect]
     Active Substance: CARBOPLATIN
     Indication: Thymoma
     Dosage: 4 CYCLES
     Route: 065
  2. PACLITAXEL [Suspect]
     Active Substance: PACLITAXEL
     Indication: Thymoma
     Dosage: FOUR CYCLES OF SECOND?LINE
     Route: 065
  3. AZACITIDINE [Suspect]
     Active Substance: AZACITIDINE
     Indication: Acute myeloid leukaemia
     Dosage: SIX CYCLES
     Route: 065
  4. MITOXANTRONE [Suspect]
     Active Substance: MITOXANTRONE HYDROCHLORIDE
     Indication: Thymoma
     Dosage: UNK
     Route: 065
  5. ETOPOSIDE [Suspect]
     Active Substance: ETOPOSIDE
     Indication: Thymoma
     Dosage: 4 CYCLES
     Route: 065
  6. VENETOCLAX [Suspect]
     Active Substance: VENETOCLAX
     Indication: Thymoma
     Dosage: UNK
     Route: 065

REACTIONS (1)
  - Disease progression [Unknown]
